FAERS Safety Report 8159313-2 (Version None)
Quarter: 2012Q1

REPORT INFORMATION
  Report Type: 
  Country: None (occurrence: None)
  Receive Date: 20120223
  Receipt Date: 20120216
  Transmission Date: 20120608
  Serious: Yes (Other)
  Sender: FDA-Public Use
  Company Number: US-PFIZER INC-2012042653

PATIENT
  Sex: Female
  Weight: 81.6 kg

DRUGS (8)
  1. ZOCOR [Concomitant]
     Indication: BLOOD CHOLESTEROL INCREASED
     Dosage: UNK
  2. LYRICA [Suspect]
     Indication: HERPES ZOSTER
     Dosage: 75MG IN THE MORNING, 75MG IN THE AFTERNOON AND TWO CAPSULES OF 75MG AT NIGHT
     Route: 048
     Dates: start: 20101201
  3. INSULIN [Concomitant]
     Indication: DIABETES MELLITUS
     Dosage: UNK
  4. VITAMIN B-12 [Concomitant]
     Dosage: UNK
  5. IBUPROFEN [Concomitant]
     Indication: PAIN
     Dosage: UNK
  6. ATENOLOL [Concomitant]
     Indication: HYPERTENSION
     Dosage: UNK
  7. VITAMIN D [Concomitant]
     Dosage: UNK
  8. ATIVAN [Concomitant]
     Indication: NEUROPATHY PERIPHERAL
     Dosage: UNK

REACTIONS (6)
  - WEIGHT INCREASED [None]
  - ROTATOR CUFF SYNDROME [None]
  - BLOOD GLUCOSE INCREASED [None]
  - PERIARTHRITIS [None]
  - PAIN [None]
  - HERPES ZOSTER [None]
